FAERS Safety Report 21712818 (Version 1)
Quarter: 2022Q4

REPORT INFORMATION
  Report Type: Spontaneous
  Country: US (occurrence: None)
  Receive Date: 20221209
  Receipt Date: 20221209
  Transmission Date: 20230113
  Serious: Yes (Disabling)
  Sender: FDA-Public Use
  Company Number: None

PATIENT
  Sex: Female
  Weight: 79.61 kg

DRUGS (2)
  1. KYLEENA [Suspect]
     Active Substance: LEVONORGESTREL
  2. PAROXETINE [Concomitant]
     Active Substance: PAROXETINE

REACTIONS (4)
  - Weight increased [None]
  - Obesity [None]
  - Polycystic ovaries [None]
  - Thyroid disorder [None]
